FAERS Safety Report 23518939 (Version 1)
Quarter: 2024Q1

REPORT INFORMATION
  Report Type: Spontaneous
  Country: ES (occurrence: ES)
  Receive Date: 20240213
  Receipt Date: 20240213
  Transmission Date: 20240410
  Serious: Yes (Hospitalization)
  Sender: FDA-Public Use
  Company Number: None

PATIENT
  Age: 47 Year
  Sex: Female

DRUGS (3)
  1. EVEROLIMUS [Interacting]
     Active Substance: EVEROLIMUS
     Indication: Renal and pancreas transplant
     Dosage: 0.75 MILLIGRAM, BID
     Route: 048
     Dates: start: 202312
  2. TACROLIMUS [Interacting]
     Active Substance: TACROLIMUS
     Indication: Renal and pancreas transplant
     Dosage: 4 MILLIGRAM, BID
     Route: 048
     Dates: start: 202207
  3. PREDNISONE [Interacting]
     Active Substance: PREDNISONE
     Indication: Renal and pancreas transplant
     Dosage: 5 MILLIGRAM, BID
     Route: 048
     Dates: start: 202207

REACTIONS (2)
  - COVID-19 [Recovered/Resolved]
  - Drug interaction [Unknown]

NARRATIVE: CASE EVENT DATE: 20231227
